FAERS Safety Report 5620356-1 (Version None)
Quarter: 2008Q1

REPORT INFORMATION
  Report Type: 
  Country: None (occurrence: None)
  Receive Date: 20080208
  Receipt Date: 20080129
  Transmission Date: 20080703
  Serious: Yes (Other)
  Sender: FDA-Public Use
  Company Number: CL-ELI_LILLY_AND_COMPANY-CL200801006775

PATIENT
  Sex: Female

DRUGS (1)
  1. TERIPARATIDE [Suspect]
     Dosage: UNK, UNKNOWN
     Route: 065
     Dates: start: 20080125, end: 20080101

REACTIONS (3)
  - BLINDNESS TRANSIENT [None]
  - DIZZINESS [None]
  - MALAISE [None]
